FAERS Safety Report 20135513 (Version 3)
Quarter: 2024Q2

REPORT INFORMATION
  Report Type: Spontaneous
  Country: US (occurrence: US)
  Receive Date: 20211201
  Receipt Date: 20240424
  Transmission Date: 20240716
  Serious: Yes (Other)
  Sender: FDA-Public Use
  Company Number: US-GLAXOSMITHKLINE-US2021AMR244968

PATIENT
  Sex: Female

DRUGS (4)
  1. BENLYSTA [Suspect]
     Active Substance: BELIMUMAB
     Indication: Systemic lupus erythematosus
     Dosage: 745 MG, ON WEEK 0,2 AND 4 THEN EVERY MONTH
     Route: 042
  2. BENLYSTA [Suspect]
     Active Substance: BELIMUMAB
     Dosage: 745 MG, ON WEEK 0,2 AND 4 THEN EVERY MONTH
     Route: 042
  3. BENLYSTA [Suspect]
     Active Substance: BELIMUMAB
     Dosage: 800 MG, Q4W
     Route: 042
  4. BENLYSTA [Suspect]
     Active Substance: BELIMUMAB
     Dosage: 800 MG, Q4W
     Route: 042

REACTIONS (5)
  - Diverticulitis [Unknown]
  - Pain [Unknown]
  - Adverse drug reaction [Unknown]
  - Abdominal pain [Unknown]
  - Product dose omission issue [Unknown]
